FAERS Safety Report 24977626 (Version 2)
Quarter: 2025Q2

REPORT INFORMATION
  Report Type: Spontaneous
  Country: US (occurrence: US)
  Receive Date: 20250217
  Receipt Date: 20250409
  Transmission Date: 20250716
  Serious: No
  Sender: BAYER
  Company Number: US-BAYER-2025A020330

PATIENT
  Age: 64 Year
  Sex: Female

DRUGS (4)
  1. MIRALAX [Suspect]
     Active Substance: POLYETHYLENE GLYCOL 3350
     Indication: Irritable bowel syndrome
     Dosage: 17 G, QD
     Route: 048
     Dates: start: 20250210, end: 20250211
  2. ESTRADIOL [Concomitant]
     Active Substance: ESTRADIOL
  3. SYNTHROID [Concomitant]
     Active Substance: LEVOTHYROXINE SODIUM
  4. TOPAMAX [Concomitant]
     Active Substance: TOPIRAMATE

REACTIONS (5)
  - Nausea [Recovered/Resolved]
  - Hypoaesthesia oral [Not Recovered/Not Resolved]
  - Product prescribing issue [None]
  - Product use in unapproved indication [None]
  - Product taste abnormal [None]

NARRATIVE: CASE EVENT DATE: 20250211
